FAERS Safety Report 8059437-4 (Version None)
Quarter: 2012Q1

REPORT INFORMATION
  Report Type: 
  Country: None (occurrence: None)
  Receive Date: 20120119
  Receipt Date: 20120119
  Transmission Date: 20120608
  Serious: Yes (Hospitalization)
  Sender: FDA-Public Use
  Company Number: None

PATIENT
  Age: 67 Year
  Sex: Male
  Weight: 79.2 kg

DRUGS (2)
  1. SATRAPLATIN 50MG 1X [Suspect]
     Indication: PROSTATE CANCER
     Dosage: 160 MG/PO QD X5 DAYS
     Route: 048
     Dates: start: 20120103, end: 20120107
  2. SATRAPLATIN 10MG [Suspect]

REACTIONS (3)
  - DECREASED APPETITE [None]
  - FATIGUE [None]
  - DYSPHAGIA [None]
